FAERS Safety Report 18961630 (Version 2)
Quarter: 2021Q1

REPORT INFORMATION
  Report Type: Other
  Country: US (occurrence: US)
  Receive Date: 20210302
  Receipt Date: 20210312
  Transmission Date: 20210420
  Serious: Yes (Hospitalization, Other)
  Sender: FDA-Public Use
  Company Number: US-ROCHE-2776579

PATIENT
  Age: 48 Year
  Sex: Female
  Weight: 61.29 kg

DRUGS (1)
  1. OCREVUS [Suspect]
     Active Substance: OCRELIZUMAB
     Indication: PRIMARY PROGRESSIVE MULTIPLE SCLEROSIS
     Route: 042
     Dates: start: 20180910

REACTIONS (5)
  - Multiple sclerosis relapse [Unknown]
  - Fall [Unknown]
  - Asthenia [Recovered/Resolved with Sequelae]
  - COVID-19 [Recovered/Resolved]
  - Gait inability [Not Recovered/Not Resolved]

NARRATIVE: CASE EVENT DATE: 202012
